FAERS Safety Report 10025227 (Version 2)
Quarter: 2014Q2

REPORT INFORMATION
  Report Type: Spontaneous
  Country: CA (occurrence: None)
  Receive Date: 20140218
  Receipt Date: 20140509
  Transmission Date: 20141212
  Serious: Yes (Hospitalization, Other)
  Sender: FDA-Public Use
  Company Number: CA-014648

PATIENT
  Age: 52 Year
  Sex: Female
  Weight: 64 kg

DRUGS (1)
  1. PICO-SALAX [Suspect]
     Indication: COLONOSCOPY
     Dosage: 2 SATCHETS 4 HOURS APART/INGESTION OF FLUID
     Route: 048
     Dates: start: 20130616, end: 20130617

REACTIONS (7)
  - Asthenia [None]
  - Headache [None]
  - Hypoaesthesia [None]
  - Hyponatraemia [None]
  - Malaise [None]
  - Nausea [None]
  - Swollen tongue [None]
